FAERS Safety Report 7485060-6 (Version None)
Quarter: 2011Q2

REPORT INFORMATION
  Report Type: 
  Country: None (occurrence: None)
  Receive Date: 20110517
  Receipt Date: 20101112
  Transmission Date: 20111010
  Serious: No
  Sender: FDA-Public Use
  Company Number: US-BAYER-2010-005000

PATIENT
  Age: 80 Year
  Sex: Male
  Weight: 77 kg

DRUGS (7)
  1. DIOVAN [Concomitant]
  2. OMEPRAZOLE [Concomitant]
  3. ATENOLOL [Concomitant]
  4. PLAVIX [Concomitant]
  5. AMLODIPINE BESYLATE [Concomitant]
  6. NIACIN [Concomitant]
  7. ALEVE (CAPLET) [Suspect]

REACTIONS (1)
  - ABDOMINAL DISCOMFORT [None]
